FAERS Safety Report 20542091 (Version 2)
Quarter: 2022Q1

REPORT INFORMATION
  Report Type: Other
  Country: LB (occurrence: LB)
  Receive Date: 20220302
  Receipt Date: 20220329
  Transmission Date: 20220423
  Serious: Yes (Death, Hospitalization, Other)
  Sender: FDA-Public Use
  Company Number: LB-002147023-NVSC2022LB040467

PATIENT
  Age: 57 Year
  Sex: Male
  Weight: 70 kg

DRUGS (2)
  1. LUCENTIS [Suspect]
     Active Substance: RANIBIZUMAB
     Indication: Diabetic retinal oedema
     Dosage: 20 MG/ML BOTH EYES
     Route: 031
     Dates: start: 20200829, end: 20200829
  2. LUCENTIS [Suspect]
     Active Substance: RANIBIZUMAB
     Dosage: 20 MG/ML BOTH EYES (LAST DOSE)
     Route: 031
     Dates: start: 202012, end: 202012

REACTIONS (4)
  - Cerebrovascular accident [Fatal]
  - Renal injury [Unknown]
  - Eye haemorrhage [Unknown]
  - Drug ineffective [Unknown]

NARRATIVE: CASE EVENT DATE: 20210501
